FAERS Safety Report 6121252-6 (Version None)
Quarter: 2009Q1

REPORT INFORMATION
  Report Type: 
  Country: None (occurrence: None)
  Receive Date: 20090317
  Receipt Date: 20090306
  Transmission Date: 20090719
  Serious: Yes (Other)
  Sender: FDA-Public Use
  Company Number: US-ELI_LILLY_AND_COMPANY-US200903001862

PATIENT
  Sex: Male

DRUGS (1)
  1. HUMULIN R [Suspect]
     Dosage: UNK, UNK

REACTIONS (6)
  - BLOOD GLUCOSE DECREASED [None]
  - BLOOD GLUCOSE INCREASED [None]
  - HEPATIC CIRRHOSIS [None]
  - HYPERTENSION [None]
  - INCORRECT DOSE ADMINISTERED [None]
  - NEOPLASM MALIGNANT [None]
